FAERS Safety Report 12841336 (Version 2)
Quarter: 2017Q3

REPORT INFORMATION
  Report Type: Spontaneous
  Country: JP (occurrence: JP)
  Receive Date: 20161012
  Receipt Date: 20170929
  Transmission Date: 20171127
  Serious: Yes (Other)
  Sender: FDA-Public Use
  Company Number: JP-OTSUKA-JP-2012-15309

PATIENT
  Age: 61 Year
  Sex: Male

DRUGS (4)
  1. PLETAAL OD TABLETS 50MG [Suspect]
     Active Substance: CILOSTAZOL
     Indication: VERTEBRAL ARTERY OCCLUSION
     Dosage: UNK
     Route: 048
  2. PLETAAL OD TABLETS 50MG [Suspect]
     Active Substance: CILOSTAZOL
     Dosage: 200 MG, QD
     Route: 048
     Dates: start: 20090219
  3. ASPIRIN. [Suspect]
     Active Substance: ASPIRIN
     Indication: PRODUCT USED FOR UNKNOWN INDICATION
     Dosage: 100 MG, QD
     Route: 048
     Dates: start: 20090219
  4. CLOPIDOGREL SULFATE [Concomitant]
     Active Substance: CLOPIDOGREL BISULFATE
     Indication: PRODUCT USED FOR UNKNOWN INDICATION
     Dosage: 75 MG, QD
     Route: 048

REACTIONS (7)
  - Melaena [Unknown]
  - Oxygen saturation decreased [Unknown]
  - Chest pain [Unknown]
  - Blood pressure decreased [Unknown]
  - Anaemia [Unknown]
  - Gastrointestinal ulcer haemorrhage [Unknown]
  - Pulmonary embolism [Unknown]
